FAERS Safety Report 8306244-0 (Version None)
Quarter: 2012Q2

REPORT INFORMATION
  Report Type: 
  Country: None (occurrence: None)
  Receive Date: 20120423
  Receipt Date: 20120418
  Transmission Date: 20120825
  Serious: No
  Sender: FDA-Public Use
  Company Number: US-PFIZER INC-2012096617

PATIENT
  Sex: Female
  Weight: 103.8 kg

DRUGS (3)
  1. BACLOFEN [Concomitant]
     Indication: MUSCLE SPASTICITY
     Dosage: UNK
  2. EFFEXOR [Suspect]
     Indication: ANXIETY
     Dosage: 75 MG, 1X/DAY
     Route: 048
     Dates: start: 20120101, end: 20120308
  3. PRISTIQ [Suspect]
     Indication: ANXIETY
     Dosage: 50 MG, 1X/DAY
     Route: 048
     Dates: start: 20120309, end: 20120310

REACTIONS (1)
  - CONFUSIONAL STATE [None]
